FAERS Safety Report 10408577 (Version 1)
Quarter: 2014Q3

REPORT INFORMATION
  Report Type: Spontaneous
  Country: US (occurrence: None)
  Receive Date: 20140822
  Receipt Date: 20140822
  Transmission Date: 20150326
  Serious: No
  Sender: FDA-Public Use
  Company Number: None

PATIENT

DRUGS (1)
  1. CREST PRO-HEALTH MULTI-PROTECTION REFRESHING CLEAN MINT [Suspect]
     Active Substance: CETYLPYRIDINIUM CHLORIDE
     Dates: start: 20140811, end: 20140814

REACTIONS (1)
  - Ageusia [None]

NARRATIVE: CASE EVENT DATE: 20140821
